FAERS Safety Report 4694456-7 (Version None)
Quarter: 2005Q2

REPORT INFORMATION
  Report Type: 
  Country: None (occurrence: None)
  Receive Date: 20050620
  Receipt Date: 20050518
  Transmission Date: 20051028
  Serious: Yes (Other)
  Sender: FDA-Public Use
  Company Number: JP-ROCHE-405270

PATIENT
  Age: 28 Year
  Sex: Female

DRUGS (5)
  1. TAMIFLU [Suspect]
     Route: 048
     Dates: start: 20050516, end: 20050517
  2. PL [Concomitant]
     Route: 050
  3. CALONAL [Concomitant]
  4. HUSTAGIN [Concomitant]
     Route: 048
  5. BISOLVON [Concomitant]

REACTIONS (2)
  - ANAPHYLACTOID REACTION [None]
  - ERYTHEMA [None]
